FAERS Safety Report 15651274 (Version 1)
Quarter: 2018Q4

REPORT INFORMATION
  Report Type: Spontaneous
  Country: US (occurrence: US)
  Receive Date: 20181123
  Receipt Date: 20181123
  Transmission Date: 20190205
  Serious: No
  Sender: FDA-Public Use
  Company Number: US-GLAXOSMITHKLINE-US2018GSK209919

PATIENT
  Sex: Male

DRUGS (1)
  1. NUCALA [Suspect]
     Active Substance: MEPOLIZUMAB
     Indication: PRODUCT USED FOR UNKNOWN INDICATION
     Dosage: 100 MG, UNK (ONCE EVERY 4 WEEKS)
     Route: 058
     Dates: start: 20181018

REACTIONS (3)
  - Injection site erythema [Recovered/Resolved]
  - Product administration error [Unknown]
  - Injection site pain [Recovered/Resolved]
